FAERS Safety Report 8793038 (Version 1)
Quarter: 2012Q4

REPORT INFORMATION
  Report Type: Report from Study
  Country: AU (occurrence: AU)
  Receive Date: 20120918
  Receipt Date: 20120918
  Transmission Date: 20130627
  Serious: Yes (Hospitalization)
  Sender: FDA-Public Use
  Company Number: AU-ROCHE-1112921

PATIENT
  Age: 45 Year
  Sex: Male

DRUGS (2)
  1. PEGASYS [Suspect]
     Indication: HEPATITIS C
     Route: 065
     Dates: start: 2002
  2. RIBAVIRIN [Concomitant]
     Route: 048

REACTIONS (6)
  - Tremor [Unknown]
  - Myalgia [Unknown]
  - Asthenia [Unknown]
  - Mental impairment [Unknown]
  - Condition aggravated [Unknown]
  - Bone pain [Unknown]
